FAERS Safety Report 16849910 (Version 2)
Quarter: 2019Q4

REPORT INFORMATION
  Report Type: Spontaneous
  Country: US (occurrence: US)
  Receive Date: 20190925
  Receipt Date: 20191226
  Transmission Date: 20200122
  Serious: Yes (Hospitalization)
  Sender: FDA-Public Use
  Company Number: US-SA-2019SA264180

PATIENT
  Age: 59 Year
  Sex: Female

DRUGS (1)
  1. AUBAGIO [Suspect]
     Active Substance: TERIFLUNOMIDE
     Indication: MULTIPLE SCLEROSIS
     Dosage: 14 MG, QD
     Route: 048
     Dates: start: 2017, end: 2019

REACTIONS (5)
  - Depression [Unknown]
  - Memory impairment [Unknown]
  - Feeding disorder [Unknown]
  - Speech disorder [Recovering/Resolving]
  - Catatonia [Unknown]

NARRATIVE: CASE EVENT DATE: 2019
